FAERS Safety Report 25585036 (Version 1)
Quarter: 2025Q3

REPORT INFORMATION
  Report Type: Spontaneous
  Country: US (occurrence: None)
  Receive Date: 20250718
  Receipt Date: 20250718
  Transmission Date: 20251021
  Serious: Yes (Life-Threatening, Other)
  Sender: FDA-CTU
  Company Number: None

PATIENT
  Sex: Female
  Weight: 51.75 kg

DRUGS (9)
  1. AMITRIPTYLINE HYDROCHLORIDE [Suspect]
     Active Substance: AMITRIPTYLINE HYDROCHLORIDE
     Indication: Migraine
     Dosage: OTHER QUANTITY : 2 TABLET(S);?FREQUENCY : AT BEDTIME;?
     Route: 048
     Dates: start: 20241025, end: 20250220
  2. NORTRIPTYLINE HYDROCHLORIDE [Concomitant]
     Active Substance: NORTRIPTYLINE HYDROCHLORIDE
     Dosage: OTHER QUANTITY : 4 CAPSULE(S);?FREQUENCY : AT BEDTIME;?
     Route: 048
     Dates: start: 20250220
  3. Nortriptyline 10 mg capsule [Concomitant]
  4. Diltiazem 120 mg 24 hr capsule [Concomitant]
  5. flecainide 150 mg tablet (as needed) [Concomitant]
  6. pantoprazole 20 mg delayed release tablet [Concomitant]
  7. triamcinolone acetonide (aka Nasacort) 55 mcg/act nasal aerosol [Concomitant]
  8. fexofenadine (aka Allegra) 180 mg tablet [Concomitant]
  9. beclomethasone diprop [Concomitant]

REACTIONS (11)
  - Dizziness [None]
  - Flushing [None]
  - Constipation [None]
  - Nightmare [None]
  - Tinnitus [None]
  - Therapy cessation [None]
  - Heart rate increased [None]
  - Paraesthesia [None]
  - Dry mouth [None]
  - Presyncope [None]
  - Atrial fibrillation [None]
